FAERS Safety Report 16833298 (Version 1)
Quarter: 2019Q3

REPORT INFORMATION
  Report Type: Spontaneous
  Country: IT (occurrence: IT)
  Receive Date: 20190920
  Receipt Date: 20190920
  Transmission Date: 20191005
  Serious: Yes (Other)
  Sender: FDA-Public Use
  Company Number: IT-AUROBINDO-AUR-APL-2019-060331

PATIENT
  Age: 2 Year
  Sex: Male

DRUGS (4)
  1. MELPHALAN. [Suspect]
     Active Substance: MELPHALAN
     Indication: RETINOBLASTOMA
     Dosage: UNK
     Route: 013
  2. MELPHALAN. [Suspect]
     Active Substance: MELPHALAN
     Dosage: 1 UNK, EVERY WEEK
     Route: 031
  3. TOPOTECAN [Suspect]
     Active Substance: TOPOTECAN HYDROCHLORIDE
     Indication: RETINOBLASTOMA
     Dosage: 1,UNK (0.3-2 MG), Q3W
     Route: 013
  4. CARBOPLATIN. [Suspect]
     Active Substance: CARBOPLATIN
     Indication: RETINOBLASTOMA
     Dosage: 30 MILLIGRAM
     Route: 013

REACTIONS (2)
  - Product use in unapproved indication [Unknown]
  - Chorioretinal atrophy [Unknown]
